FAERS Safety Report 16714729 (Version 3)
Quarter: 2020Q1

REPORT INFORMATION
  Report Type: Report from Study
  Country: JP (occurrence: JP)
  Receive Date: 20190819
  Receipt Date: 20200331
  Transmission Date: 20200409
  Serious: Yes (Other)
  Sender: FDA-Public Use
  Company Number: JP-AUROBINDO-AUR-APL-2019-054276

PATIENT
  Age: 70 Year
  Sex: Female
  Weight: 59 kg

DRUGS (36)
  1. LEUCOVORIN. [Concomitant]
     Active Substance: LEUCOVORIN
     Indication: PRODUCT USED FOR UNKNOWN INDICATION
     Dosage: 10 DOSAGE FORM, PER DAY
     Route: 048
     Dates: start: 20190426, end: 20190426
  2. LEUCOVORIN. [Concomitant]
     Active Substance: LEUCOVORIN
     Dosage: 6 DOSAGE FORM, PER DAY
     Route: 048
     Dates: start: 20190531, end: 20190531
  3. LEUCOVORIN. [Concomitant]
     Active Substance: LEUCOVORIN
     Dosage: 9 DOSAGE FORM, PER DAY
     Route: 048
     Dates: start: 20190601, end: 20190601
  4. PRALATREXATE INJECTION [Suspect]
     Active Substance: PRALATREXATE
     Dosage: 30 MILLIGRAM/SQ. METER
     Route: 042
     Dates: start: 20190502
  5. PRALATREXATE INJECTION [Suspect]
     Active Substance: PRALATREXATE
     Dosage: 30 MILLIGRAM/SQ. METER
     Route: 042
     Dates: start: 20190516
  6. LEUCOVORIN. [Concomitant]
     Active Substance: LEUCOVORIN
     Dosage: 9 DOSAGE FORM, PER DAY
     Route: 048
     Dates: start: 20190518, end: 20190518
  7. LEUCOVORIN. [Concomitant]
     Active Substance: LEUCOVORIN
     Dosage: 3 DOSAGE FORM, PER DAY
     Route: 048
     Dates: start: 20190526, end: 20190526
  8. DEXART [Concomitant]
     Active Substance: DEXAMETHASONE SODIUM PHOSPHATE
     Indication: PROPHYLAXIS OF NAUSEA AND VOMITING
     Dosage: 6.6 MILLIGRAM, AS NECESSARY
     Route: 042
     Dates: start: 20190425, end: 20190530
  9. LEUCOVORIN. [Concomitant]
     Active Substance: LEUCOVORIN
     Dosage: 15 DOSAGE FORM, PER DAY
     Route: 048
     Dates: start: 20190427, end: 20190427
  10. LEUCOVORIN. [Concomitant]
     Active Substance: LEUCOVORIN
     Dosage: 5 DOSAGE FORM, PER DAY
     Route: 048
     Dates: start: 20190428, end: 20190428
  11. LEUCOVORIN. [Concomitant]
     Active Substance: LEUCOVORIN
     Dosage: 3 DOSAGE FORM, PER DAY
     Route: 048
     Dates: start: 20190505, end: 20190505
  12. LEUCOVORIN. [Concomitant]
     Active Substance: LEUCOVORIN
     Dosage: 9 DOSAGE FORM, PER DAY
     Route: 048
     Dates: start: 20190511, end: 20190511
  13. BELSOMRA [Concomitant]
     Active Substance: SUVOREXANT
     Indication: INSOMNIA
     Dosage: 15 MILLIGRAM PER DAY
     Route: 048
  14. RENIVACE [Concomitant]
     Active Substance: ENALAPRIL
     Indication: VENTRICULAR EXTRASYSTOLES
     Dosage: 3.75 MILLIGRAM PER DAY
     Route: 048
  15. LIXIANA OD [Concomitant]
     Active Substance: EDOXABAN TOSYLATE
     Indication: THROMBOSIS PROPHYLAXIS
     Dosage: 30 MILLIGRAM PER DAY
     Route: 048
  16. PRALATREXATE INJECTION [Suspect]
     Active Substance: PRALATREXATE
     Dosage: 30 MILLIGRAM/SQ. METER
     Route: 042
     Dates: start: 20190530
  17. PANVITAN [Concomitant]
     Active Substance: VITAMINS
     Indication: PROPHYLAXIS
     Dosage: 2 GRAM PER DAY
     Route: 048
     Dates: start: 20190418, end: 20190701
  18. LEUCOVORIN. [Concomitant]
     Active Substance: LEUCOVORIN
     Dosage: 9 DOSAGE FORM, PER DAY
     Route: 048
     Dates: start: 20190504, end: 20190504
  19. LEUCOVORIN. [Concomitant]
     Active Substance: LEUCOVORIN
     Dosage: 9 DOSAGE FORM, PER DAY
     Route: 048
     Dates: start: 20190525, end: 20190525
  20. FEBURIC [Concomitant]
     Active Substance: FEBUXOSTAT
     Indication: METABOLIC DISORDER PROPHYLAXIS
     Dosage: 20 MILLIGRAM, ONCE A DAY
     Route: 048
  21. PRALATREXATE INJECTION [Suspect]
     Active Substance: PRALATREXATE
     Dosage: 30 MILLIGRAM/SQ. METER
     Route: 042
     Dates: start: 20190509
  22. FRESMIN S [Concomitant]
     Active Substance: HYDROXOCOBALAMIN
     Indication: PROPHYLAXIS
     Dosage: UNK
     Route: 065
     Dates: start: 20190418
  23. LEUCOVORIN. [Concomitant]
     Active Substance: LEUCOVORIN
     Dosage: 3 DOSAGE FORM, PER DAY
     Route: 048
     Dates: start: 20190512, end: 20190512
  24. LEUCOVORIN. [Concomitant]
     Active Substance: LEUCOVORIN
     Dosage: 6 DOSAGE FORM, PER DAY
     Route: 048
     Dates: start: 20190517, end: 20190517
  25. NEXIUM [Concomitant]
     Active Substance: ESOMEPRAZOLE MAGNESIUM
     Indication: PROPHYLAXIS AGAINST GASTROINTESTINAL ULCER
     Dosage: 10 MILLIGRAM PER DAY
     Route: 048
  26. PRALATREXATE INJECTION [Suspect]
     Active Substance: PRALATREXATE
     Indication: PERIPHERAL T-CELL LYMPHOMA UNSPECIFIED
     Dosage: 30 MILLIGRAM/SQ. METER
     Route: 042
     Dates: start: 20190425
  27. LEUCOVORIN. [Concomitant]
     Active Substance: LEUCOVORIN
     Dosage: 3 DOSAGE FORM, PER DAY
     Route: 048
     Dates: start: 20190519, end: 20190519
  28. DAIPHEN [Concomitant]
     Active Substance: SULFAMETHOXAZOLE\TRIMETHOPRIM
     Indication: INFECTION PROPHYLAXIS
     Dosage: 480 MILLIGRAM PER DAY
     Route: 048
  29. LEUCOVORIN. [Concomitant]
     Active Substance: LEUCOVORIN
     Dosage: 6 DOSAGE FORM, PER DAY
     Route: 048
     Dates: start: 20190503, end: 20190503
  30. LEUCOVORIN. [Concomitant]
     Active Substance: LEUCOVORIN
     Dosage: 6 DOSAGE FORM, PER DAY
     Route: 048
     Dates: start: 20190524, end: 20190524
  31. ARTIST [Concomitant]
     Active Substance: CARVEDILOL
     Indication: VENTRICULAR EXTRASYSTOLES
     Dosage: 3.750 MILLIGRAM PER DAY
     Route: 048
  32. PRALATREXATE INJECTION [Suspect]
     Active Substance: PRALATREXATE
     Dosage: 30 MILLIGRAM/SQ. METER
     Route: 042
     Dates: start: 20190523
  33. MUNDESINE [Suspect]
     Active Substance: FORODESINE HYDROCHLORIDE
     Indication: PERIPHERAL T-CELL LYMPHOMA UNSPECIFIED
     Dosage: UNK
     Route: 048
     Dates: start: 20180704, end: 20180830
  34. LEUCOVORIN. [Concomitant]
     Active Substance: LEUCOVORIN
     Dosage: 6 DOSAGE FORM, PER DAY
     Route: 048
     Dates: start: 20190503, end: 20190503
  35. LEUCOVORIN. [Concomitant]
     Active Substance: LEUCOVORIN
     Dosage: 6 DOSAGE FORM, PER DAY
     Route: 048
     Dates: start: 20190510, end: 20190510
  36. LEUCOVORIN. [Concomitant]
     Active Substance: LEUCOVORIN
     Dosage: 3 DOSAGE FORM, PER DAY
     Route: 048
     Dates: start: 20190602, end: 20190602

REACTIONS (4)
  - Lymphopenia [Recovered/Resolved]
  - Herpes zoster [Not Recovered/Not Resolved]
  - Malignant neoplasm progression [Unknown]
  - Ocular surface disease [Not Recovered/Not Resolved]

NARRATIVE: CASE EVENT DATE: 20180831
